FAERS Safety Report 7744528-5 (Version None)
Quarter: 2011Q3

REPORT INFORMATION
  Report Type: 
  Country: None (occurrence: None)
  Receive Date: 20110912
  Receipt Date: 20101119
  Transmission Date: 20111222
  Serious: Yes (Other)
  Sender: FDA-Public Use
  Company Number: US-BAYER-201034855NA

PATIENT
  Age: 26 Year
  Sex: Female

DRUGS (8)
  1. TRAMADOL HYDROCHLORIDE [Concomitant]
  2. MIRENA [Suspect]
     Indication: PRODUCT USED FOR UNKNOWN INDICATION
     Route: 015
     Dates: start: 20090101, end: 20100723
  3. VITAMIN TAB [Concomitant]
  4. PROVIGIL [Concomitant]
  5. BETASERON [Suspect]
     Indication: RELAPSING-REMITTING MULTIPLE SCLEROSIS
     Route: 058
     Dates: start: 20100615, end: 20100601
  6. HYDROCODONE [Concomitant]
  7. CELEXA [Concomitant]
  8. YAZ [Concomitant]
     Dates: start: 20101001

REACTIONS (8)
  - KIDNEY INFECTION [None]
  - MATERNAL EXPOSURE DURING PREGNANCY [None]
  - POST PROCEDURAL HAEMORRHAGE [None]
  - BACK PAIN [None]
  - ABORTION SPONTANEOUS [None]
  - VAGINAL HAEMORRHAGE [None]
  - AMENORRHOEA [None]
  - HUMAN CHORIONIC GONADOTROPIN DECREASED [None]
